FAERS Safety Report 12320124 (Version 3)
Quarter: 2016Q2

REPORT INFORMATION
  Report Type: Report from Study
  Country: US (occurrence: US)
  Receive Date: 20160429
  Receipt Date: 20160622
  Transmission Date: 20160815
  Serious: Yes (Other)
  Sender: FDA-Public Use
  Company Number: US-TARO-2016TAR00303

PATIENT
  Age: 37 Year
  Sex: Female
  Weight: 64.4 kg

DRUGS (2)
  1. ORTHO TRI CYCLEN [Concomitant]
     Active Substance: ETHINYL ESTRADIOL\NORGESTIMATE
     Indication: CONTRACEPTION
     Dosage: 1 TABLETS, 1X/DAY
     Route: 048
     Dates: start: 1999, end: 20160224
  2. DAPSONE GEL [Suspect]
     Active Substance: DAPSONE
     Indication: ACNE
     Dosage: UNK, 2X/DAY
     Route: 061
     Dates: start: 20160107, end: 20160331

REACTIONS (2)
  - Abortion spontaneous [Not Recovered/Not Resolved]
  - Exposure during pregnancy [Not Recovered/Not Resolved]

NARRATIVE: CASE EVENT DATE: 20160331
